FAERS Safety Report 7210610-4 (Version None)
Quarter: 2011Q1

REPORT INFORMATION
  Report Type: 
  Country: None (occurrence: None)
  Receive Date: 20110105
  Receipt Date: 20101229
  Transmission Date: 20110831
  Serious: Yes (Death, Hospitalization, Other)
  Sender: FDA-Public Use
  Company Number: PHHY2009US66519

PATIENT
  Sex: Male

DRUGS (5)
  1. EXJADE [Suspect]
     Indication: IRON OVERLOAD
     Dosage: 1500 MG, QD
     Route: 048
  2. VALIUM [Concomitant]
  3. EXJADE [Suspect]
     Dosage: 2000 MG, UNK
     Route: 048
  4. SPRYCEL [Suspect]
     Indication: CHRONIC MYELOID LEUKAEMIA
     Dosage: 50 MG, DAILY
     Route: 048
  5. LORAZEPAM [Concomitant]

REACTIONS (19)
  - SPLENOMEGALY [None]
  - ASCITES [None]
  - ABDOMINAL DISTENSION [None]
  - URGE INCONTINENCE [None]
  - TONGUE OEDEMA [None]
  - NEOPLASM MALIGNANT [None]
  - OEDEMA PERIPHERAL [None]
  - SWELLING [None]
  - IRRITABILITY [None]
  - SCROTAL OEDEMA [None]
  - ASTHENIA [None]
  - NUTRITIONAL CONDITION ABNORMAL [None]
  - PETECHIAE [None]
  - ECCHYMOSIS [None]
  - HEPATOMEGALY [None]
  - FALL [None]
  - PLATELET COUNT DECREASED [None]
  - HEADACHE [None]
  - BLOOD ALBUMIN DECREASED [None]
